FAERS Safety Report 15978536 (Version 5)
Quarter: 2019Q4

REPORT INFORMATION
  Report Type: Spontaneous
  Country: US (occurrence: US)
  Receive Date: 20190219
  Receipt Date: 20191114
  Transmission Date: 20200122
  Serious: Yes (Other)
  Sender: FDA-Public Use
  Company Number: US-BRISTOL-MYERS SQUIBB COMPANY-BMS-2019-017082

PATIENT
  Sex: Male

DRUGS (2)
  1. SPRYCEL [Suspect]
     Active Substance: DASATINIB
     Indication: CHRONIC MYELOID LEUKAEMIA
     Dosage: 80 MG, QD
     Route: 048
     Dates: start: 20170928
  2. SPRYCEL [Suspect]
     Active Substance: DASATINIB
     Indication: PRODUCT USED FOR UNKNOWN INDICATION
     Dosage: 82 MILLIGRAM, QD
     Route: 048

REACTIONS (8)
  - Adverse event [Unknown]
  - Respiratory tract congestion [Unknown]
  - Wheezing [Unknown]
  - Fatigue [Unknown]
  - Periorbital swelling [Unknown]
  - Diarrhoea [Unknown]
  - Pleural effusion [Unknown]
  - Dyspnoea [Unknown]
